FAERS Safety Report 7064092-6 (Version None)
Quarter: 2010Q4

REPORT INFORMATION
  Report Type: 
  Country: None (occurrence: None)
  Receive Date: 20101027
  Receipt Date: 20101019
  Transmission Date: 20110411
  Serious: Yes (Hospitalization)
  Sender: FDA-Public Use
  Company Number: DE-ELI_LILLY_AND_COMPANY-DE201010004452

PATIENT
  Age: 69 Year
  Sex: Female

DRUGS (8)
  1. BYETTA [Suspect]
     Dosage: 10 UG, UNK
     Route: 058
  2. METFORMIN [Concomitant]
     Dosage: 1000 MG, UNK
  3. CARMEN [Concomitant]
     Dosage: 20 MG, UNK
  4. DIOVAN [Concomitant]
     Dosage: 160 MG, UNK
  5. ASPIRIN [Concomitant]
     Dosage: 100 MG, UNK
  6. MOXONIDIN [Concomitant]
     Dosage: 0.3 MG, UNK
  7. ALLOPURINOL [Concomitant]
     Dosage: 100 MG, UNK
  8. TORSEMIDE [Concomitant]
     Dosage: 10 MG, UNK

REACTIONS (1)
  - PANCREATIC CARCINOMA [None]
